FAERS Safety Report 12937111 (Version 1)
Quarter: 2016Q4

REPORT INFORMATION
  Report Type: Other
  Country: None (occurrence: US)
  Receive Date: 20161114
  Receipt Date: 20161114
  Transmission Date: 20170207
  Serious: Yes (Death, Hospitalization)
  Sender: FDA-Public Use
  Company Number: US-MERCK KGAA-1059500

PATIENT

DRUGS (1)
  1. NOVOTHYROX [Suspect]
     Active Substance: LEVOTHYROXINE SODIUM

REACTIONS (9)
  - Mixed liver injury [None]
  - Oesophageal candidiasis [None]
  - Cholangitis [None]
  - Odynophagia [None]
  - Cholangitis sclerosing [None]
  - Cholestasis [None]
  - Vanishing bile duct syndrome [None]
  - Biliary tract disorder [None]
  - Portal tract inflammation [None]
